FAERS Safety Report 8086762-3 (Version None)
Quarter: 2012Q1

REPORT INFORMATION
  Report Type: 
  Country: None (occurrence: None)
  Receive Date: 20120128
  Receipt Date: 20110613
  Transmission Date: 20120608
  Serious: No
  Sender: FDA-Public Use
  Company Number: US-ABBOTT-11P-163-0732100-00

PATIENT
  Age: 37 Year
  Sex: Female

DRUGS (6)
  1. ASCORBIC ACID [Concomitant]
     Indication: IMMUNE SYSTEM DISORDER
  2. ORTHO TRI-CYCLEN [Concomitant]
     Indication: CONTRACEPTION
     Dosage: DAILY
  3. GENERIC CELEXA [Concomitant]
     Indication: ANXIETY
  4. SYNTHROID [Concomitant]
     Indication: BLOOD THYROID STIMULATING HORMONE DECREASED
  5. MULTI-VITAMINS [Concomitant]
     Indication: VITAMIN SUPPLEMENTATION
  6. HUMIRA [Suspect]
     Indication: PSORIASIS
     Dates: start: 20110501

REACTIONS (2)
  - OROPHARYNGEAL PAIN [None]
  - FATIGUE [None]
